FAERS Safety Report 5730533-7 (Version None)
Quarter: 2008Q2

REPORT INFORMATION
  Report Type: 
  Country: None (occurrence: None)
  Receive Date: 20080507
  Receipt Date: 20080429
  Transmission Date: 20081010
  Serious: Yes (Death)
  Sender: FDA-Public Use
  Company Number: RO-ASTRAZENECA-2008SE02049

PATIENT
  Age: 27369 Day
  Sex: Male

DRUGS (13)
  1. CRESTOR [Suspect]
  2. CLOPIDOGREL [Suspect]
     Indication: ACUTE CORONARY SYNDROME
     Route: 048
     Dates: start: 20080310
  3. ASPENTER [Suspect]
     Indication: PROPHYLAXIS
     Route: 048
  4. DIGOXIN [Suspect]
  5. CARVEDILOL [Suspect]
  6. PREDUCTAL [Suspect]
  7. PRESTARIUM [Suspect]
     Dates: start: 20080312
  8. OLICARD [Suspect]
  9. NITROGLYCERINA [Concomitant]
     Dates: start: 20080310, end: 20080311
  10. NITROGLYCERINA [Concomitant]
     Dates: start: 20080311
  11. MONONITRON [Concomitant]
  12. DIUREX [Concomitant]
     Dates: start: 20080311
  13. ENOXAPARIN SODIUM [Concomitant]
     Dates: start: 20080311, end: 20080317

REACTIONS (1)
  - SUDDEN DEATH [None]
